FAERS Safety Report 9507610 (Version 1)
Quarter: 2013Q3

REPORT INFORMATION
  Report Type: Spontaneous
  Country: GB (occurrence: None)
  Receive Date: 20130905
  Receipt Date: 20130905
  Transmission Date: 20140515
  Serious: Yes (Disabling, Other)
  Sender: FDA-Public Use
  Company Number: 1879877

PATIENT
  Age: 57 Year
  Sex: Female

DRUGS (5)
  1. GENTAMICIN SULFATE [Suspect]
     Indication: NEUTROPENIC SEPSIS
     Dosage: UNKNOWN, UNKNOWN, PARENTERAL
     Dates: start: 20121228, end: 20121230
  2. RITUXIMAB [Concomitant]
  3. CYCLOPHOSPHAMIDE [Concomitant]
  4. DOXORUBICIN [Concomitant]
  5. VINCRISTINE [Concomitant]

REACTIONS (5)
  - Vertigo [None]
  - Oscillopsia [None]
  - Dizziness [None]
  - Gait disturbance [None]
  - Ear disorder [None]
